FAERS Safety Report 4637190-1 (Version None)
Quarter: 2005Q2

REPORT INFORMATION
  Report Type: 
  Country: None (occurrence: None)
  Receive Date: 20050416
  Receipt Date: 20050311
  Transmission Date: 20051028
  Serious: Yes (Other)
  Sender: FDA-Public Use
  Company Number: PHEH2005US03041

PATIENT
  Age: 46 Year
  Sex: Female

DRUGS (6)
  1. ELIDEL [Suspect]
     Indication: ECZEMA
     Dosage: UNK, QD
     Route: 061
     Dates: start: 20020101
  2. ZYRTEC [Concomitant]
     Dosage: UNK, PRN
  3. PROTOPIC [Concomitant]
     Dosage: UNK, PRN
  4. ACLOVATE [Concomitant]
     Dosage: UNK, PRN
  5. ULTRAVATE [Concomitant]
  6. BENADRYL ^PFIZER WARNER-LAMBERT^ [Concomitant]

REACTIONS (4)
  - BREAST CANCER FEMALE [None]
  - BREAST CANCER IN SITU [None]
  - MALIGNANT BREAST LUMP REMOVAL [None]
  - RADIOTHERAPY [None]
